FAERS Safety Report 6844510-6 (Version None)
Quarter: 2010Q2

REPORT INFORMATION
  Report Type: 
  Country: None (occurrence: None)
  Receive Date: 20100629
  Receipt Date: 20100419
  Transmission Date: 20101027
  Serious: No
  Sender: FDA-Public Use
  Company Number: US-WYE-H14788010

PATIENT
  Age: 64 Year
  Sex: Female
  Weight: 99.88 kg

DRUGS (6)
  1. PRISTIQ [Suspect]
     Indication: DEPRESSION
     Dosage: 100 MG 1X PER 1 DAY, ORAL
     Route: 048
     Dates: start: 20090801
  2. EFFEXOR [Concomitant]
  3. SIMVASTATIN [Concomitant]
  4. ALLOPURINOL [Concomitant]
  5. VALTREX [Concomitant]
  6. AMBIEN [Concomitant]

REACTIONS (1)
  - HYPERHIDROSIS [None]
